FAERS Safety Report 12586684 (Version 1)
Quarter: 2016Q3

REPORT INFORMATION
  Report Type: Spontaneous
  Country: GB (occurrence: GB)
  Receive Date: 20160725
  Receipt Date: 20160725
  Transmission Date: 20161109
  Serious: Yes (Hospitalization)
  Sender: FDA-Public Use
  Company Number: GB-SA-2016SA128783

PATIENT
  Age: 20 Year
  Sex: Male

DRUGS (5)
  1. VITAMIN D [Concomitant]
     Active Substance: CHOLECALCIFEROL
     Indication: VITAMIN D DEFICIENCY
  2. LORATADINE. [Concomitant]
     Active Substance: LORATADINE
     Indication: PREMEDICATION
  3. MYOZYME [Suspect]
     Active Substance: ALGLUCOSIDASE ALFA
     Indication: GLYCOGEN STORAGE DISEASE TYPE II
     Route: 041
  4. PARACETAMOL [Concomitant]
     Active Substance: ACETAMINOPHEN
     Indication: PREMEDICATION
  5. HYDROCORTISONE. [Concomitant]
     Active Substance: HYDROCORTISONE
     Indication: PREMEDICATION

REACTIONS (11)
  - Condition aggravated [Unknown]
  - Arthralgia [Unknown]
  - Hyperaesthesia [Unknown]
  - Nausea [Unknown]
  - White blood cell count abnormal [Unknown]
  - Vomiting [Unknown]
  - Feeling cold [Unknown]
  - Pyrexia [Unknown]
  - Malaise [Unknown]
  - Off label use [Unknown]
  - Irritability [Unknown]
